FAERS Safety Report 8187208 (Version 2)
Quarter: 2013Q2

REPORT INFORMATION
  Report Type: Spontaneous
  Country: US (occurrence: US)
  Receive Date: 20111018
  Receipt Date: 20130422
  Transmission Date: 20140414
  Serious: No
  Sender: FDA-Public Use
  Company Number: US-ASTRAZENECA-2010SE36333

PATIENT
  Age: 75 Year
  Sex: Female
  Weight: 45.4 kg

DRUGS (9)
  1. SYMBICORT PMDI [Suspect]
     Indication: CHRONIC OBSTRUCTIVE PULMONARY DISEASE
     Dosage: 160/ 4.5 MCG- 2 BID
     Route: 055
     Dates: start: 201001
  2. SYMBICORT PMDI [Suspect]
     Indication: ASTHMA
     Dosage: 160/ 4.5 MCG- 2 BID
     Route: 055
     Dates: start: 201001
  3. SYMBICORT PMDI [Suspect]
     Indication: CHRONIC OBSTRUCTIVE PULMONARY DISEASE
     Dosage: 160, 2 PUFFS BID
     Route: 055
  4. SYMBICORT PMDI [Suspect]
     Indication: ASTHMA
     Dosage: 160, 2 PUFFS BID
     Route: 055
  5. LISINOPRIL [Suspect]
     Indication: HYPERTENSION
     Route: 048
  6. CELESTONE [Concomitant]
     Dosage: ONCE PER MONTH
  7. FLORASTOR [Concomitant]
     Indication: CONSTIPATION
     Route: 048
  8. VENTOLIN [Concomitant]
     Indication: RESPIRATORY THERAPY
     Dosage: AS REQUIRED
     Route: 055
  9. BABY ASPIRIN [Concomitant]
     Route: 048

REACTIONS (9)
  - Respiratory disorder [Unknown]
  - Malaise [Unknown]
  - Restless legs syndrome [Unknown]
  - Fall [Unknown]
  - Limb injury [Unknown]
  - Contusion [Unknown]
  - Hypersensitivity [Unknown]
  - Drug dose omission [Unknown]
  - Drug effect decreased [Unknown]
